FAERS Safety Report 5262526-0 (Version None)
Quarter: 2007Q1

REPORT INFORMATION
  Report Type: 
  Country: None (occurrence: None)
  Receive Date: 20070312
  Receipt Date: 20070226
  Transmission Date: 20070707
  Serious: Yes (Hospitalization)
  Sender: FDA-Public Use
  Company Number: PHNU2007SI01032

PATIENT
  Age: 41 Year
  Sex: Male
  Weight: 71 kg

DRUGS (5)
  1. CLOPIXOL [Concomitant]
  2. RIVOTRIL [Concomitant]
  3. PRAZINE [Concomitant]
  4. AKINETON [Concomitant]
  5. CLOZAPINE [Suspect]
     Indication: PSYCHOTIC DISORDER
     Dosage: 150 MG, TID
     Route: 048
     Dates: start: 19980101

REACTIONS (6)
  - FATIGUE [None]
  - GASTRITIS EROSIVE [None]
  - GASTROINTESTINAL HAEMORRHAGE [None]
  - LEUKOPENIA [None]
  - PYREXIA [None]
  - SURGERY [None]
